FAERS Safety Report 7662387-6 (Version None)
Quarter: 2011Q3

REPORT INFORMATION
  Report Type: 
  Country: None (occurrence: None)
  Receive Date: 20110805
  Receipt Date: 20101213
  Transmission Date: 20111222
  Serious: No
  Sender: FDA-Public Use
  Company Number: US-ABBOTT-10P-163-0691772-00

PATIENT
  Sex: Female

DRUGS (6)
  1. NIASPAN [Suspect]
     Indication: BLOOD CHOLESTEROL INCREASED
  2. WARFARIN SODIUM [Concomitant]
     Indication: THROMBOSIS PROPHYLAXIS
  3. SIMVASTATIN [Concomitant]
     Indication: BLOOD CHOLESTEROL INCREASED
  4. LABETALOL HCL [Concomitant]
     Indication: HYPERTENSION
  5. ACTOS [Concomitant]
     Indication: DIABETES MELLITUS
     Dates: start: 20100601
  6. ASPIRIN [Concomitant]
     Indication: PRODUCT USED FOR UNKNOWN INDICATION

REACTIONS (2)
  - NAUSEA [None]
  - FLUSHING [None]
